FAERS Safety Report 22792776 (Version 2)
Quarter: 2023Q4

REPORT INFORMATION
  Report Type: Spontaneous
  Country: IT (occurrence: IT)
  Receive Date: 20230807
  Receipt Date: 20231002
  Transmission Date: 20240110
  Serious: Yes (Other)
  Sender: FDA-Public Use
  Company Number: IT-MLMSERVICE-20230720-4424875-1

PATIENT
  Age: 11 Year
  Sex: Male

DRUGS (10)
  1. CARBOPLATIN [Suspect]
     Active Substance: CARBOPLATIN
     Indication: Medulloblastoma
     Dosage: INT PROTOCOL
  2. ETOPOSIDE [Suspect]
     Active Substance: ETOPOSIDE
     Indication: Medulloblastoma
     Dosage: INT PROTOCOL
  3. METHOTREXATE [Suspect]
     Active Substance: METHOTREXATE
     Indication: Brain cancer metastatic
     Dosage: INT PROTOCOL
  4. CYCLOPHOSPHAMIDE [Suspect]
     Active Substance: CYCLOPHOSPHAMIDE
     Indication: Medulloblastoma
     Dosage: INT PROTOCOL
  5. VINCRISTINE [Suspect]
     Active Substance: VINCRISTINE
     Indication: Brain cancer metastatic
     Dosage: INT PROTOCOL
  6. ETOPOSIDE [Suspect]
     Active Substance: ETOPOSIDE
     Indication: Brain cancer metastatic
     Dosage: INT PROTOCOL
  7. CYCLOPHOSPHAMIDE [Suspect]
     Active Substance: CYCLOPHOSPHAMIDE
     Indication: Brain cancer metastatic
     Dosage: INT PROTOCOL
  8. CARBOPLATIN [Suspect]
     Active Substance: CARBOPLATIN
     Indication: Brain cancer metastatic
     Dosage: INT PROTOCOL
  9. METHOTREXATE [Suspect]
     Active Substance: METHOTREXATE
     Indication: Medulloblastoma
     Dosage: INT PROTOCOL
  10. VINCRISTINE [Suspect]
     Active Substance: VINCRISTINE
     Indication: Medulloblastoma
     Dosage: INT PROTOCOL

REACTIONS (3)
  - Myopathy [Unknown]
  - Muscular weakness [Unknown]
  - Off label use [Unknown]
